FAERS Safety Report 25659242 (Version 1)
Quarter: 2025Q3

REPORT INFORMATION
  Report Type: Report from Study
  Country: IN (occurrence: IN)
  Receive Date: 20250808
  Receipt Date: 20250808
  Transmission Date: 20251021
  Serious: Yes (Hospitalization, Other)
  Sender: DAIICHI
  Company Number: IN-AstraZeneca-CH-00922002A

PATIENT
  Age: 37 Year
  Sex: Female
  Weight: 63 kg

DRUGS (1)
  1. ENHERTU [Suspect]
     Active Substance: FAM-TRASTUZUMAB DERUXTECAN-NXKI
     Indication: Product used for unknown indication
     Dosage: UNK, ONCE EVERY 3 WK
     Route: 040
     Dates: start: 202507

REACTIONS (11)
  - Vomiting [Unknown]
  - Pleural effusion [Unknown]
  - Blood albumin decreased [Unknown]
  - Asthenia [Unknown]
  - Diarrhoea [Unknown]
  - Feeding disorder [Unknown]
  - Mouth ulceration [Unknown]
  - Gait inability [Unknown]
  - Dyspepsia [Unknown]
  - Anxiety [Unknown]
  - Hypophagia [Unknown]
